FAERS Safety Report 5106508-8 (Version None)
Quarter: 2006Q3

REPORT INFORMATION
  Report Type: 
  Country: None (occurrence: None)
  Receive Date: 20060912
  Receipt Date: 20060825
  Transmission Date: 20061208
  Serious: Yes (Death, Hospitalization)
  Sender: FDA-Public Use
  Company Number: GB200606005651

PATIENT
  Age: 77 Year
  Sex: Female
  Weight: 55.1 kg

DRUGS (9)
  1. GEMCITABINE [Suspect]
     Indication: ADENOCARCINOMA PANCREAS
     Dosage: 1480 MG
     Dates: start: 20060522
  2. DALTEPARIN SODIUM [Suspect]
     Indication: ADENOCARCINOMA PANCREAS
     Dosage: 10000 U
     Dates: start: 20060515, end: 20060611
  3. PANCREATIN TRIPLE STRENGTH CAP [Concomitant]
  4. RAMIPRIL [Concomitant]
  5. VERAPAMIL [Concomitant]
  6. LANSOPRAZOLE [Concomitant]
  7. AMITRIPTYLINE HCL [Concomitant]
  8. FENTANYL [Concomitant]
  9. DEXAMETHASONE TAB [Concomitant]

REACTIONS (8)
  - BILIARY SEPSIS [None]
  - BLOOD BICARBONATE INCREASED [None]
  - BLOOD CHLORIDE DECREASED [None]
  - BLOOD CREATININE DECREASED [None]
  - BLOOD POTASSIUM DECREASED [None]
  - CHOLANGITIS [None]
  - STENT OCCLUSION [None]
  - STENT PLACEMENT [None]
